FAERS Safety Report 17041741 (Version 1)
Quarter: 2019Q4

REPORT INFORMATION
  Report Type: Spontaneous
  Country: GB (occurrence: GB)
  Receive Date: 20191118
  Receipt Date: 20191118
  Transmission Date: 20200122
  Serious: Yes (Other)
  Sender: FDA-Public Use
  Company Number: GB-TEVA-2019-GB-1137794

PATIENT
  Age: 77 Year
  Sex: Female
  Weight: 100 kg

DRUGS (23)
  1. AMLODIPINE [Suspect]
     Active Substance: AMLODIPINE BESYLATE
     Dates: start: 20180208
  2. MACROBID [Concomitant]
     Active Substance: NITROFURANTOIN\NITROFURANTOIN MONOHYDRATE
     Dosage: 2 DOSAGE FORMS, 1 BD FOR 7 DAYS THEN ASD
     Dates: start: 20171227, end: 20180103
  3. FERROUS FUMARATE [Concomitant]
     Active Substance: FERROUS FUMARATE
     Dosage: 1 DOSAGE FORMS
     Dates: start: 20130313
  4. CETIRIZINE [Concomitant]
     Active Substance: CETIRIZINE HYDROCHLORIDE
     Dosage: 1 DOSAGE FORMS
     Dates: start: 20180110, end: 20180209
  5. FENBID [Concomitant]
     Active Substance: IBUPROFEN
     Dosage: 3 DOSAGE FORMS
     Dates: start: 20180212
  6. ISOPTO PLAIN [Concomitant]
     Dosage: 1-2 DROPS 3 TIMES/DAY IN BOTH EYES
     Route: 050
     Dates: start: 20170731
  7. FUROSEMIDE. [Concomitant]
     Active Substance: FUROSEMIDE
     Dosage: 1 DOSAGE FORMS, MORNING
     Dates: start: 20100621, end: 20180212
  8. MAGNESIUM CITRATE. [Concomitant]
     Active Substance: MAGNESIUM CITRATE
     Dosage: 1 DOSAGE FORMS
     Dates: start: 20171205, end: 20180203
  9. BISOPROLOL [Concomitant]
     Active Substance: BISOPROLOL
     Dosage: 1 DOSAGE FORMS
     Dates: start: 20141008, end: 20180215
  10. BECONASE AQ [Concomitant]
     Active Substance: BECLOMETHASONE DIPROPIONATE MONOHYDRATE
     Dosage: 4 DOSAGE FORMS, TO BOTH NOSTRILS
     Route: 045
     Dates: start: 20180110, end: 20180207
  11. BENDROFLUMETHIAZIDE [Concomitant]
     Active Substance: BENDROFLUMETHIAZIDE
     Dosage: 1 DOSAGE FORMS
     Dates: start: 20180212
  12. GABAPENTIN. [Concomitant]
     Active Substance: GABAPENTIN
     Dosage: 3 DOSAGE FORMS
     Dates: start: 20180110, end: 20180209
  13. PARACETAMOL [Concomitant]
     Active Substance: ACETAMINOPHEN
     Dosage: TAKE 1 OR 2 4 TIMES/DAY
     Dates: start: 20171205, end: 20171217
  14. DOXAZOSIN [Concomitant]
     Active Substance: DOXAZOSIN MESYLATE
     Dosage: 2 DOSAGE FORMS, 11AM AND PM
     Dates: start: 20180212
  15. ACIDEX [Concomitant]
     Active Substance: CALCIUM CARBONATE\SODIUM ALGINATE\SODIUM BICARBONATE
     Dosage: 40 ML
     Dates: start: 20171205, end: 20171217
  16. DUORESP SPIROMAX [Concomitant]
     Active Substance: BUDESONIDE\FORMOTEROL
     Dosage: 2 DOSAGE FORMS, AS DIRECTED
     Dates: start: 20180110
  17. VENTOLIN [Concomitant]
     Active Substance: ALBUTEROL SULFATE
     Dosage: 2 DOSAGE FORMS
     Route: 055
     Dates: start: 20180212
  18. ADCAL [Concomitant]
     Dosage: 4 DOSAGE FORMS
     Dates: start: 20160126
  19. LANSOPRAZOLE. [Concomitant]
     Active Substance: LANSOPRAZOLE
     Dosage: 1 DOSAGE FORMS
     Dates: start: 20180110, end: 20180207
  20. TRIMETHOPRIM. [Concomitant]
     Active Substance: TRIMETHOPRIM
     Dosage: 2 DOSAGE FORMS
     Dates: start: 20180108, end: 20180111
  21. CLOTRIMAZOLE. [Concomitant]
     Active Substance: CLOTRIMAZOLE
     Dosage: APPLY TWICE OR THREE TIMES DAY
     Dates: start: 20171227, end: 20180124
  22. LOSARTAN. [Concomitant]
     Active Substance: LOSARTAN
     Dosage: 1 DOSAGE FORMS
     Dates: start: 20170104
  23. ESTRADIOL. [Concomitant]
     Active Substance: ESTRADIOL
     Dosage: 1 DOSAGE FORM,APPLY
     Dates: start: 20180109, end: 20180206

REACTIONS (2)
  - Peripheral swelling [Unknown]
  - Swelling [Unknown]

NARRATIVE: CASE EVENT DATE: 20180208
